FAERS Safety Report 5113897-7 (Version None)
Quarter: 2006Q3

REPORT INFORMATION
  Report Type: 
  Country: None (occurrence: None)
  Receive Date: 20060925
  Receipt Date: 19941222
  Transmission Date: 20061208
  Serious: Yes (Hospitalization)
  Sender: FDA-Public Use
  Company Number: NO-ROCHE-940194051001

PATIENT
  Age: 28 Year
  Sex: Female
  Weight: 65 kg

DRUGS (1)
  1. INTERFERON ALFA-2A [Suspect]
     Indication: MULTIPLE SCLEROSIS
     Route: 058
     Dates: start: 19941014

REACTIONS (1)
  - PARAPARESIS [None]
